FAERS Safety Report 10401172 (Version 1)
Quarter: 2014Q3

REPORT INFORMATION
  Report Type: Spontaneous
  Country: US (occurrence: US)
  Receive Date: 20140822
  Receipt Date: 20140822
  Transmission Date: 20150326
  Serious: Yes (Hospitalization)
  Sender: FDA-Public Use
  Company Number: US-AMGEN-USASP2014062888

PATIENT
  Age: 82 Year
  Sex: Female

DRUGS (12)
  1. VESICARE [Concomitant]
     Active Substance: SOLIFENACIN SUCCINATE
  2. LISINOPRIL. [Concomitant]
     Active Substance: LISINOPRIL
  3. PROLIA [Suspect]
     Active Substance: DENOSUMAB
     Indication: OSTEOPOROSIS POSTMENOPAUSAL
     Dosage: UNK
     Route: 065
     Dates: start: 201402
  4. CELEBREX [Concomitant]
     Active Substance: CELECOXIB
  5. TYLENOL [Concomitant]
     Active Substance: ACETAMINOPHEN
     Indication: BACK PAIN
  6. RETINAVITES [Concomitant]
  7. CENTRUM SILVER                     /02363801/ [Concomitant]
     Active Substance: VITAMINS
  8. NEXIUM [Concomitant]
     Active Substance: ESOMEPRAZOLE MAGNESIUM
  9. CALCIUM                            /00060701/ [Concomitant]
     Active Substance: CALCIUM
     Dosage: 600 MG, QD
  10. DILANTIN [Concomitant]
     Active Substance: PHENYTOIN
  11. GLUCOSAMINE [Concomitant]
     Active Substance: GLUCOSAMINE
  12. ZOLOFT [Concomitant]
     Active Substance: SERTRALINE HYDROCHLORIDE
     Dosage: 12 TABLET

REACTIONS (15)
  - Muscle spasms [Unknown]
  - Eczema [Recovered/Resolved]
  - Scar [Recovered/Resolved]
  - Injection site exfoliation [Unknown]
  - Dry skin [Not Recovered/Not Resolved]
  - Blood cholesterol increased [Unknown]
  - Pruritus [Unknown]
  - Musculoskeletal pain [Unknown]
  - Urticaria [Recovered/Resolved]
  - Fall [Unknown]
  - Skin exfoliation [Unknown]
  - Blister [Unknown]
  - Rash [Recovered/Resolved]
  - Mobility decreased [Unknown]
  - Erythema [Unknown]

NARRATIVE: CASE EVENT DATE: 201403
